FAERS Safety Report 7435627 (Version 3)
Quarter: 2014Q2

REPORT INFORMATION
  Report Type: Spontaneous
  Country: US (occurrence: US)
  Receive Date: 20100624
  Receipt Date: 20131024
  Transmission Date: 20141212
  Serious: Yes (Other)
  Sender: FDA-Public Use
  Company Number: US-PFIZER INC-2009184641

PATIENT
  Age: 64 Year
  Sex: Female
  Weight: 75 kg

DRUGS (5)
  1. PROVERA [Suspect]
     Indication: HORMONE REPLACEMENT THERAPY
     Dosage: UNK
     Dates: start: 1994, end: 2003
  2. PREMARIN [Suspect]
     Indication: HORMONE REPLACEMENT THERAPY
     Dosage: UNK
     Dates: start: 1994, end: 2003
  3. PREMPRO [Suspect]
     Indication: HORMONE REPLACEMENT THERAPY
     Dosage: UNK
  4. MEDROXYPROGESTERONE ACETATE [Suspect]
     Indication: HORMONE REPLACEMENT THERAPY
     Dosage: UNK
     Dates: start: 1994, end: 2003
  5. MEDROXYPROGESTERONE [Suspect]
     Indication: HORMONE REPLACEMENT THERAPY
     Dosage: UNK
     Dates: start: 1994, end: 2003

REACTIONS (1)
  - Breast cancer female [Unknown]
